FAERS Safety Report 10166863 (Version 2)
Quarter: 2014Q2

REPORT INFORMATION
  Report Type: Spontaneous
  Country: GB (occurrence: None)
  Receive Date: 20140508
  Receipt Date: 20140520
  Transmission Date: 20141212
  Serious: Yes (Hospitalization)
  Sender: FDA-Public Use
  Company Number: AUR-APL-2014-05275

PATIENT
  Age: 69 Year
  Sex: Female

DRUGS (2)
  1. METFORMIN (METFORMIN) [Suspect]
     Indication: TYPE 2 DIABETES MELLITUS
     Dosage: 2 GM (1 GM, 2 IN 1 D), UNKNOWN
  2. BYDUREON [Suspect]
     Indication: TYPE 2 DIABETES MELLITUS
     Dosage: 2 MG, 1 IN 1 WK
     Route: 058
     Dates: start: 20120402

REACTIONS (7)
  - Hyperglycaemia [None]
  - Malaise [None]
  - Fatigue [None]
  - Hypoglycaemia [None]
  - Asthenia [None]
  - Diabetes mellitus inadequate control [None]
  - Discomfort [None]
